FAERS Safety Report 5835381-5 (Version None)
Quarter: 2008Q3

REPORT INFORMATION
  Report Type: 
  Country: None (occurrence: None)
  Receive Date: 20080806
  Receipt Date: 20080728
  Transmission Date: 20090109
  Serious: Yes (Other)
  Sender: FDA-Public Use
  Company Number: US-MERCK-0807USA05371

PATIENT
  Age: 37 Year
  Sex: Female

DRUGS (1)
  1. SINGULAIR [Suspect]
     Indication: RHINITIS ALLERGIC
     Route: 048
     Dates: start: 20080714, end: 20080721

REACTIONS (2)
  - DEPRESSION [None]
  - SUICIDAL IDEATION [None]
